FAERS Safety Report 6702289-2 (Version None)
Quarter: 2010Q2

REPORT INFORMATION
  Report Type: 
  Country: None (occurrence: None)
  Receive Date: 20100429
  Receipt Date: 20100420
  Transmission Date: 20101027
  Serious: Yes (Hospitalization)
  Sender: FDA-Public Use
  Company Number: GXKR2010AT04365

PATIENT
  Age: 68 Year
  Sex: Female

DRUGS (1)
  1. THIAMAZOLE SANDOZ (NGX) [Suspect]
     Indication: HYPOTHYROIDISM
     Dosage: UNK
     Route: 065

REACTIONS (1)
  - RETINAL PIGMENT EPITHELIOPATHY [None]
